FAERS Safety Report 16583082 (Version 1)
Quarter: 2019Q3

REPORT INFORMATION
  Report Type: Spontaneous
  Country: DE (occurrence: DE)
  Receive Date: 20190717
  Receipt Date: 20190717
  Transmission Date: 20191004
  Serious: Yes (Hospitalization)
  Sender: FDA-Public Use
  Company Number: DE-AUROBINDO-AUR-APL-2019-040340

PATIENT

DRUGS (6)
  1. LEUKOVORIN [Suspect]
     Active Substance: LEUCOVORIN SODIUM
     Indication: PRODUCT USED FOR UNKNOWN INDICATION
     Dosage: ON 24.11.2017, SOLUTION FOR INJECTION / INFUSION
     Route: 042
  2. LOPERAMIDE [Concomitant]
     Active Substance: LOPERAMIDE
     Indication: PRODUCT USED FOR UNKNOWN INDICATION
     Dosage: 2 MILLIGRAM (2 MG, TABLETS)
     Route: 048
  3. OMEPRAZOL [Concomitant]
     Active Substance: OMEPRAZOLE
     Indication: PRODUCT USED FOR UNKNOWN INDICATION
     Dosage: 20 MILLIGRAM (20 MG, 1-0-1, TABLETS)
     Route: 048
  4. DOCETAXEL CONCENTRATE FOR SOLUTION FOR INFUSION [Suspect]
     Active Substance: DOCETAXEL
     Indication: PRODUCT USED FOR UNKNOWN INDICATION
     Dosage: UNK, (ON 24.11.2017, SOLUTION FOR INJECTION / INFUSION)
     Route: 042
  5. OXALIPLATIN CONCENTRATE FOR SOLUTION FOR INFUSION [Suspect]
     Active Substance: OXALIPLATIN
     Indication: PRODUCT USED FOR UNKNOWN INDICATION
     Dosage: UNK, (ON 24.11.2017, SOLUTION FOR INJECTION / INFUSION)
     Route: 042
  6. FLUOROURACIL. [Suspect]
     Active Substance: FLUOROURACIL
     Indication: PRODUCT USED FOR UNKNOWN INDICATION
     Dosage: UNK (ON 24.11.2017, SOLUTION FOR INJECTION / INFUSION)
     Route: 042

REACTIONS (3)
  - Asthenia [Unknown]
  - Diarrhoea [Unknown]
  - Dehydration [Unknown]
